FAERS Safety Report 19733449 (Version 2)
Quarter: 2021Q3

REPORT INFORMATION
  Report Type: Report from Study
  Country: None (occurrence: US)
  Receive Date: 20210823
  Receipt Date: 20210902
  Transmission Date: 20211014
  Serious: Yes (Other)
  Sender: FDA-Public Use
  Company Number: US-ABBVIE-21K-163-4048772-00

PATIENT
  Age: 54 Year
  Sex: Female

DRUGS (2)
  1. HUMIRA [Suspect]
     Active Substance: ADALIMUMAB
     Indication: CROHN^S DISEASE
     Route: 058
     Dates: start: 202005, end: 20210521
  2. HUMIRA [Suspect]
     Active Substance: ADALIMUMAB
     Indication: CROHN^S DISEASE
     Route: 058
     Dates: start: 20210703

REACTIONS (19)
  - Defaecation urgency [Unknown]
  - Loss of personal independence in daily activities [Unknown]
  - Arthralgia [Recovering/Resolving]
  - Diarrhoea [Recovering/Resolving]
  - Abdominal adhesions [Unknown]
  - Abdominal distension [Recovering/Resolving]
  - Injection site warmth [Recovered/Resolved]
  - Impaired quality of life [Unknown]
  - Injection site pruritus [Recovered/Resolved]
  - Pain [Unknown]
  - Insomnia [Recovering/Resolving]
  - Injection site urticaria [Recovered/Resolved]
  - Feeling hot [Unknown]
  - Decreased appetite [Recovering/Resolving]
  - Fatigue [Recovering/Resolving]
  - Abdominal pain [Recovering/Resolving]
  - Pruritus [Unknown]
  - Urticaria [Unknown]
  - Gastrointestinal sounds abnormal [Recovering/Resolving]

NARRATIVE: CASE EVENT DATE: 20210101
